FAERS Safety Report 8236698-X (Version None)
Quarter: 2012Q1

REPORT INFORMATION
  Report Type: 
  Country: None (occurrence: None)
  Receive Date: 20120326
  Receipt Date: 20120326
  Transmission Date: 20120608
  Serious: Yes (Hospitalization)
  Sender: FDA-Public Use
  Company Number: None

PATIENT
  Age: 78 Year
  Sex: Male
  Weight: 90.7194 kg

DRUGS (1)
  1. PREDNISONE [Suspect]
     Indication: BRONCHITIS
     Dosage: 5 MG TID PO (047)
     Route: 048
     Dates: start: 20120118, end: 20120128

REACTIONS (4)
  - CONFUSIONAL STATE [None]
  - PSYCHOTIC DISORDER [None]
  - DELUSION [None]
  - HALLUCINATION, VISUAL [None]
